FAERS Safety Report 21172280 (Version 2)
Quarter: 2023Q2

REPORT INFORMATION
  Report Type: Spontaneous
  Country: GB (occurrence: GB)
  Receive Date: 20220804
  Receipt Date: 20230502
  Transmission Date: 20230722
  Serious: Yes (Other)
  Sender: FDA-Public Use
  Company Number: GB-INSMED, INC.-2022-02144-GB

PATIENT
  Age: 16 Year
  Sex: Male
  Weight: 46.3 kg

DRUGS (22)
  1. AMIKACIN SULFATE [Suspect]
     Active Substance: AMIKACIN SULFATE
     Indication: Mycobacterial infection
     Dosage: UNK
     Route: 065
  2. MOXIFLOXACIN [Suspect]
     Active Substance: MOXIFLOXACIN
     Indication: Mycobacterial infection
     Dosage: UNK
     Route: 065
  3. ETHAMBUTOL [Suspect]
     Active Substance: ETHAMBUTOL HYDROCHLORIDE
     Indication: Mycobacterial infection
     Dosage: UNK
     Route: 065
  4. CLARITHROMYCIN [Suspect]
     Active Substance: CLARITHROMYCIN
     Indication: Mycobacterial infection
     Route: 065
  5. GANCICLOVIR [Suspect]
     Active Substance: GANCICLOVIR
     Indication: Cytomegalovirus viraemia
     Dosage: UNK
     Route: 065
  6. COTRIMOXAZOLE [Suspect]
     Active Substance: SULFAMETHOXAZOLE\TRIMETHOPRIM
     Indication: Prophylaxis
     Route: 065
  7. FLUCONAZOLE [Suspect]
     Active Substance: FLUCONAZOLE
     Indication: Oral candidiasis
     Route: 065
  8. DARUNAVIR [Suspect]
     Active Substance: DARUNAVIR
     Indication: Perinatal HIV infection
     Route: 065
  9. RITONAVIR [Suspect]
     Active Substance: RITONAVIR
     Indication: Perinatal HIV infection
     Route: 065
  10. DOLUTEGRAVIR [Suspect]
     Active Substance: DOLUTEGRAVIR
     Indication: Perinatal HIV infection
     Route: 065
  11. TENOFOVIR [Suspect]
     Active Substance: TENOFOVIR
     Indication: Perinatal HIV infection
     Route: 065
  12. EMTRICITABINE [Suspect]
     Active Substance: EMTRICITABINE
     Indication: Perinatal HIV infection
     Route: 065
  13. PREDNISOLONE [Suspect]
     Active Substance: PREDNISOLONE
     Indication: Immune reconstitution inflammatory syndrome
     Route: 065
  14. ALBUMIN HUMAN [Suspect]
     Active Substance: ALBUMIN HUMAN
     Indication: Product used for unknown indication
     Route: 065
  15. ROSUVASTATIN [Concomitant]
     Active Substance: ROSUVASTATIN
     Indication: Hypercholesterolaemia
     Route: 065
  16. SYMTUZA [Concomitant]
     Active Substance: COBICISTAT\DARUNAVIR\EMTRICITABINE\TENOFOVIR ALAFENAMIDE
     Indication: Perinatal HIV infection
     Route: 065
  17. IRON [Concomitant]
     Active Substance: IRON
     Indication: Mineral supplementation
     Route: 065
  18. MENADIONE [Concomitant]
     Active Substance: MENADIONE
     Indication: Vitamin supplementation
     Route: 065
  19. VITAMIN E [Concomitant]
     Active Substance: .ALPHA.-TOCOPHEROL
     Indication: Vitamin supplementation
     Route: 065
  20. URSODIOL [Concomitant]
     Active Substance: URSODIOL
     Indication: Supplementation therapy
     Route: 065
  21. PYRIDOXINE [Concomitant]
     Active Substance: PYRIDOXINE
     Indication: Vitamin supplementation
     Route: 065
  22. CHOLECALCIFEROL [Concomitant]
     Active Substance: CHOLECALCIFEROL
     Indication: Vitamin supplementation
     Route: 065

REACTIONS (4)
  - Deafness bilateral [Unknown]
  - Deafness neurosensory [Unknown]
  - Product administered to patient of inappropriate age [Unknown]
  - Off label use [Unknown]
